FAERS Safety Report 4835635-5 (Version None)
Quarter: 2005Q4

REPORT INFORMATION
  Report Type: 
  Country: None (occurrence: None)
  Receive Date: 20051121
  Receipt Date: 20051102
  Transmission Date: 20060501
  Serious: Yes (Hospitalization)
  Sender: FDA-Public Use
  Company Number: WAES 0410USA00659

PATIENT
  Age: 74 Year
  Sex: Male

DRUGS (7)
  1. COZAAR [Suspect]
     Indication: HYPERTENSION
     Dosage: 50 MG/DAILY PO
     Route: 048
     Dates: start: 20000906
  2. CARVEDILOL [Suspect]
     Indication: HYPERTENSION
     Dosage: SEE IMAGE
     Route: 048
     Dates: start: 20041013, end: 20041107
  3. CARVEDILOL [Suspect]
     Indication: HYPERTENSION
     Dosage: SEE IMAGE
     Route: 048
     Dates: start: 20041108, end: 20050113
  4. CARVEDILOL [Suspect]
     Indication: HYPERTENSION
     Dosage: SEE IMAGE
     Route: 048
     Dates: start: 20050114, end: 20050315
  5. LORATADINE [Concomitant]
  6. FRANDOL [Concomitant]
  7. NORVASC [Concomitant]

REACTIONS (6)
  - ASTHMA [None]
  - DIZZINESS [None]
  - DIZZINESS POSTURAL [None]
  - LOSS OF CONSCIOUSNESS [None]
  - PULMONARY TUBERCULOSIS [None]
  - SYNCOPE VASOVAGAL [None]
